FAERS Safety Report 9685427 (Version 1)
Quarter: 2013Q4

REPORT INFORMATION
  Report Type: Spontaneous
  Country: US (occurrence: None)
  Receive Date: 20131112
  Receipt Date: 20131112
  Transmission Date: 20140711
  Serious: Yes (Disabling)
  Sender: FDA-Public Use
  Company Number: None

PATIENT
  Age: 79 Year
  Sex: Male
  Weight: 72.58 kg

DRUGS (1)
  1. CLOPIDOGREL 75MG [Suspect]
     Indication: STENT PLACEMENT
     Dosage: 1 PILL
     Route: 048
     Dates: start: 20131010, end: 20131107

REACTIONS (5)
  - Epistaxis [None]
  - Contusion [None]
  - Insomnia [None]
  - Blood pressure increased [None]
  - Product odour abnormal [None]
